FAERS Safety Report 6911608-3 (Version None)
Quarter: 2010Q3

REPORT INFORMATION
  Report Type: 
  Country: None (occurrence: None)
  Receive Date: 20100806
  Receipt Date: 20100802
  Transmission Date: 20110219
  Serious: Yes (Hospitalization)
  Sender: FDA-Public Use
  Company Number: FR-KINGPHARMUSA00001-K201000966

PATIENT
  Age: 75 Year

DRUGS (8)
  1. ALTACE [Suspect]
     Indication: HYPERTENSION
     Dosage: 2.5 MG, QD
     Route: 048
     Dates: end: 20091206
  2. METOPROLOL [Concomitant]
  3. SIMVASTATIN ACO [Concomitant]
  4. ACETAMINOPHEN [Concomitant]
  5. DUROFERON [Concomitant]
  6. FURIX [Concomitant]
  7. TROMBYL [Concomitant]
  8. STILNOCT [Concomitant]

REACTIONS (3)
  - BLOOD CREATININE INCREASED [None]
  - BRADYCARDIA [None]
  - HYPERKALAEMIA [None]
